FAERS Safety Report 11806660 (Version 5)
Quarter: 2016Q1

REPORT INFORMATION
  Report Type: Spontaneous
  Country: US (occurrence: US)
  Receive Date: 20151207
  Receipt Date: 20160323
  Transmission Date: 20160525
  Serious: No
  Sender: FDA-Public Use
  Company Number: US-GLAXOSMITHKLINE-US2015GSK167497

PATIENT
  Sex: Male

DRUGS (4)
  1. SINEMET [Concomitant]
     Active Substance: CARBIDOPA\LEVODOPA
  2. ROPINIROLE TABLET [Suspect]
     Active Substance: ROPINIROLE
     Dosage: 1 MG, UNK
     Dates: start: 201106
  3. ROPINIROLE TABLET [Suspect]
     Active Substance: ROPINIROLE
     Indication: PARKINSON^S DISEASE
     Dosage: 1 UNK, UNK
     Dates: start: 2010
  4. ROPINIROLE TABLET [Suspect]
     Active Substance: ROPINIROLE
     Dosage: 1 MG, UNK
     Dates: start: 2012

REACTIONS (8)
  - Pharyngeal oedema [Unknown]
  - Swelling face [Unknown]
  - Oral discomfort [Unknown]
  - Dyspnoea [Unknown]
  - Drug ineffective [Unknown]
  - Product substitution issue [Unknown]
  - Swollen tongue [Unknown]
  - Lip swelling [Unknown]

NARRATIVE: CASE EVENT DATE: 2011
